FAERS Safety Report 4847753-6 (Version None)
Quarter: 2005Q4

REPORT INFORMATION
  Report Type: 
  Country: None (occurrence: None)
  Receive Date: 20051205
  Receipt Date: 20051129
  Transmission Date: 20060501
  Serious: Yes (Hospitalization)
  Sender: FDA-Public Use
  Company Number: 2005P1000568

PATIENT
  Age: 83 Year
  Sex: Male
  Weight: 64 kg

DRUGS (7)
  1. RETEPLASE (RETEPLASE) [Suspect]
     Indication: ACUTE MYOCARDIAL INFARCTION
     Dosage: IV
     Route: 042
     Dates: start: 20051026, end: 20051026
  2. ABCIXIMAB (ABCIXIMAB) [Suspect]
     Indication: ACUTE MYOCARDIAL INFARCTION
     Dosage: IV
     Route: 042
     Dates: start: 20051026
  3. SIMVASTATIN [Concomitant]
  4. CLOPIDOGREL [Concomitant]
  5. ASPIRIN [Concomitant]
  6. PERINDOPRIL [Concomitant]
  7. METOPROLOL [Concomitant]

REACTIONS (1)
  - MALLORY-WEISS SYNDROME [None]
